FAERS Safety Report 9664850 (Version 1)
Quarter: 2013Q4

REPORT INFORMATION
  Report Type: Spontaneous
  Country: IN (occurrence: None)
  Receive Date: 20131031
  Receipt Date: 20131031
  Transmission Date: 20140711
  Serious: Yes (Hospitalization)
  Sender: FDA-Public Use
  Company Number: FK201304750

PATIENT
  Age: 48 Year
  Sex: Female

DRUGS (3)
  1. ANASTROZOLE (MANUFACTURER UNKNOWN) (ANASTROZOLE) (ANASTROZOLE) [Suspect]
     Indication: BREAST CANCER
  2. CALCIUM (CALCIUM) [Concomitant]
  3. ZOLEDRONIC ACID (ZOLERONIC ACID) [Concomitant]

REACTIONS (1)
  - Tardive dyskinesia [None]
